FAERS Safety Report 9231747 (Version 1)
Quarter: 2013Q2

REPORT INFORMATION
  Report Type: Report from Study
  Country: HR (occurrence: HR)
  Receive Date: 20130415
  Receipt Date: 20130415
  Transmission Date: 20140414
  Serious: Yes (Hospitalization, Other)
  Sender: FDA-Public Use
  Company Number: HR-TEVA-398196ISR

PATIENT
  Age: 76 Year
  Sex: Female

DRUGS (18)
  1. CISPLATIN [Suspect]
     Indication: METASTATIC GASTRIC CANCER
     Route: 041
     Dates: start: 20130219, end: 20130219
  2. CISPLATIN [Suspect]
     Route: 041
     Dates: start: 20130327
  3. S-1(GIMERACIL W/OTERACIL POTASSIUM/TEGAFUR) [Suspect]
     Indication: METASTATIC GASTRIC CANCER
     Route: 048
     Dates: start: 20130219, end: 20130311
  4. S-1(GIMERACIL W/OTERACIL POTASSIUM/TEGAFUR) [Suspect]
     Route: 048
     Dates: start: 20130327
  5. PANTOPRAZOL [Concomitant]
     Indication: NAUSEA
  6. PANTOPRAZOL [Concomitant]
     Indication: PROPHYLAXIS
  7. ALPRAZOLAM [Concomitant]
     Indication: INSOMNIA
     Dates: start: 2012
  8. LISINOPRIL [Concomitant]
     Indication: HYPERTENSION
     Dates: start: 2009
  9. ISOPTO TEARS [Concomitant]
     Indication: EYE DISORDER
     Dates: start: 2012
  10. TIMOLOL [Concomitant]
     Indication: GLAUCOMA
     Dates: start: 2012
  11. RESOURCE [Concomitant]
     Indication: DECREASED APPETITE
     Dates: start: 20130115
  12. METOCLOPRAMIDE [Concomitant]
     Indication: NAUSEA
     Dates: start: 20130219
  13. ONDANSETRON [Concomitant]
     Indication: PROPHYLAXIS OF NAUSEA AND VOMITING
     Dates: start: 20130219
  14. RANITIDINE [Concomitant]
     Indication: GASTRITIS PROPHYLAXIS
     Dates: start: 20130212
  15. KCL [Concomitant]
     Indication: HYPOKALAEMIA
     Dates: start: 20130312
  16. TRAMADOL [Concomitant]
     Indication: ABDOMINAL PAIN
     Dates: start: 20130313
  17. ENSURE [Concomitant]
     Indication: DECREASED APPETITE
     Dates: start: 20130316
  18. ERYTHROCYTE CONCENTRATE [Concomitant]
     Indication: ANAEMIA
     Dates: start: 20130322, end: 20130322

REACTIONS (5)
  - Dehydration [Recovered/Resolved]
  - Hypomagnesaemia [Recovered/Resolved]
  - Enterocolitis [Unknown]
  - Platelet count decreased [Unknown]
  - Leukopenia [Unknown]
